FAERS Safety Report 22753925 (Version 9)
Quarter: 2023Q4

REPORT INFORMATION
  Report Type: Spontaneous
  Country: KR (occurrence: KR)
  Receive Date: 20230727
  Receipt Date: 20231212
  Transmission Date: 20240110
  Serious: Yes (Death, Life-Threatening, Other)
  Sender: FDA-Public Use
  Company Number: KR-SA-SAC20230710001370

PATIENT
  Age: 16 Year
  Sex: Male
  Weight: 53.8 kg

DRUGS (21)
  1. HYDROCORTISONE [Suspect]
     Active Substance: HYDROCORTISONE
     Indication: Peritoneal carcinoma metastatic
     Dosage: 30 MG, MOST RECENT DOSE OF STUDY DRUG PRIOR TO AE/SAE 04/MAY/2023
     Route: 037
     Dates: start: 20230329, end: 20230504
  2. HYDROCORTISONE [Suspect]
     Active Substance: HYDROCORTISONE
     Indication: Metastatic lymphoma
     Dosage: MOST RECENT DOSE OF STUDY DRUG PRIOR TO AE/SAE 04/MAY/2023, 30 MG
     Route: 037
     Dates: start: 20230329
  3. HYDROCORTISONE [Suspect]
     Active Substance: HYDROCORTISONE
     Indication: Non-Hodgkin^s lymphoma metastatic
     Dosage: MOST RECENT DOSE OF STUDY DRUG PRIOR TO AE/SAE 04/MAY/2023
     Route: 037
     Dates: start: 20230329
  4. LENOGRASTIM [Suspect]
     Active Substance: LENOGRASTIM
     Indication: Non-Hodgkin^s lymphoma metastatic
     Dosage: UNK, START DATE OF MOST RECENT DOSE 300 UG OF STUDY DRUG G-CSF PRIOR TO SAE/AE:28/MAY/2023
     Route: 042
     Dates: start: 20230519
  5. LENOGRASTIM [Suspect]
     Active Substance: LENOGRASTIM
     Indication: Non-Hodgkin^s lymphoma metastatic
  6. CYTARABINE [Suspect]
     Active Substance: CYTARABINE
     Indication: Peritoneal carcinoma metastatic
     Dosage: MOST RECENT DOSE OF STUDY DRUG PRIOR TO AE/SAE 04/MAY/2023
     Route: 037
     Dates: start: 20230329, end: 20230504
  7. CYTARABINE [Suspect]
     Active Substance: CYTARABINE
     Indication: Metastatic lymphoma
     Dosage: MOST RECENT DOSE OF STUDY DRUG PRIOR TO AE/SAE 04/ MAY/2023, 70 MG
     Route: 037
     Dates: start: 20230329
  8. CYTARABINE [Suspect]
     Active Substance: CYTARABINE
     Indication: Non-Hodgkin^s lymphoma metastatic
  9. CYTARABINE [Suspect]
     Active Substance: CYTARABINE
     Indication: Peritoneal carcinoma metastatic
  10. GLOFITAMAB [Suspect]
     Active Substance: GLOFITAMAB
     Indication: Non-Hodgkin^s lymphoma metastatic
     Dosage: 2.5 MG
     Route: 042
     Dates: start: 20230518
  11. GLOFITAMAB [Suspect]
     Active Substance: GLOFITAMAB
     Indication: Peritoneal carcinoma metastatic
     Dosage: UNK
     Route: 042
     Dates: start: 20230518
  12. GLOFITAMAB [Suspect]
     Active Substance: GLOFITAMAB
     Indication: Non-Hodgkin^s lymphoma metastatic
     Route: 065
  13. OBINUTUZUMAB [Suspect]
     Active Substance: OBINUTUZUMAB
     Indication: Non-Hodgkin^s lymphoma metastatic
     Dosage: 900 MG
     Route: 042
     Dates: start: 20230511
  14. OBINUTUZUMAB [Suspect]
     Active Substance: OBINUTUZUMAB
     Indication: Peritoneal carcinoma metastatic
     Dosage: 100 MG
     Route: 065
     Dates: start: 20230511
  15. OBINUTUZUMAB [Suspect]
     Active Substance: OBINUTUZUMAB
     Indication: Metastatic lymphoma
     Dosage: 100 MG
     Route: 042
     Dates: start: 20230511
  16. OBINUTUZUMAB [Suspect]
     Active Substance: OBINUTUZUMAB
     Indication: Non-Hodgkin^s lymphoma metastatic
     Dosage: UNK
     Route: 065
  17. OBINUTUZUMAB [Suspect]
     Active Substance: OBINUTUZUMAB
     Indication: Non-Hodgkin^s lymphoma metastatic
     Dosage: 900 MG
     Route: 042
  18. OBINUTUZUMAB [Suspect]
     Active Substance: OBINUTUZUMAB
     Dosage: 900 MG
     Route: 042
  19. OBINUTUZUMAB [Suspect]
     Active Substance: OBINUTUZUMAB
     Dosage: ON 12/MAY/2023, MOST RECENT DOSE OF STUDY DRUG PRIOR TO AE/SAEAS PER PROTOCOL, DAYS 1 AND 2 OF CYCLE
     Route: 042
  20. TOCILIZUMAB [Suspect]
     Active Substance: TOCILIZUMAB
     Indication: Cytokine release syndrome
     Dosage: 480 MG
     Route: 042
     Dates: start: 20230518, end: 20230519
  21. TOCILIZUMAB [Suspect]
     Active Substance: TOCILIZUMAB
     Dosage: ON 19/MAY/2023, HE RECEIVED MOST RECENT DOSE OF TOCILIZUMAB PRIOR TO AE/ SAE 480 MG
     Route: 042
     Dates: start: 20230518

REACTIONS (10)
  - Death [Fatal]
  - Seizure [Not Recovered/Not Resolved]
  - Depressed level of consciousness [Not Recovered/Not Resolved]
  - Blood bilirubin increased [Not Recovered/Not Resolved]
  - Immune effector cell-associated neurotoxicity syndrome [Not Recovered/Not Resolved]
  - Alanine aminotransferase increased [Recovered/Resolved]
  - Dyspnoea [Not Recovered/Not Resolved]
  - Dyspnoea [Not Recovered/Not Resolved]
  - Seizure [Recovered/Resolved]
  - Depressed level of consciousness [Not Recovered/Not Resolved]

NARRATIVE: CASE EVENT DATE: 20230519
